FAERS Safety Report 12433596 (Version 1)
Quarter: 2016Q2

REPORT INFORMATION
  Report Type: Spontaneous
  Country: MX (occurrence: MX)
  Receive Date: 20160603
  Receipt Date: 20160603
  Transmission Date: 20160815
  Serious: Yes (Hospitalization, Other)
  Sender: FDA-Public Use
  Company Number: MX-SA-2016SA103631

PATIENT
  Age: 90 Year
  Sex: Female
  Weight: 74 kg

DRUGS (6)
  1. OXYGEN. [Concomitant]
     Active Substance: OXYGEN
     Indication: CHRONIC OBSTRUCTIVE PULMONARY DISEASE
     Dosage: ONGOING / 10 YEARS APPROXIMATELY
     Route: 055
     Dates: start: 2006
  2. NORVASC [Concomitant]
     Active Substance: AMLODIPINE BESYLATE
     Indication: HYPERTENSION
     Dosage: NORVASC (AMLODIPINE) (5 MG, TABLET)?1 TABLET / 24 HOURS
     Route: 048
  3. CLEXANE [Suspect]
     Active Substance: ENOXAPARIN SODIUM
     Indication: THROMBOSIS PROPHYLAXIS
     Dosage: ONGOING / 3 MONTHS APPROXIMATELY?40 MG / 24 HOURS?CLEXANE  (ENOXAPARIN) (40 MG/0.4 M,L
     Route: 058
     Dates: start: 20160212
  4. SPIRIVA [Concomitant]
     Active Substance: TIOTROPIUM BROMIDE MONOHYDRATE
     Indication: CHRONIC OBSTRUCTIVE PULMONARY DISEASE
     Dosage: ONGOING / 10 YEARS APPROXIMATELY
     Route: 048
     Dates: start: 2006
  5. NOVOTIRAL [Concomitant]
     Active Substance: LEVOTHYROXINE
     Indication: HYPOTHYROIDISM
     Route: 048
     Dates: start: 1986
  6. ATACAND [Concomitant]
     Active Substance: CANDESARTAN CILEXETIL
     Indication: HYPERTENSION
     Dosage: ATACAND  PLUS (CANDESARTAN + HYDROCHLOROTHIAZIDE) (16 MG + 12.5 MG, TABLET)?1 TABLET / 24 HOURS
     Route: 048

REACTIONS (1)
  - Ascites [Recovered/Resolved]

NARRATIVE: CASE EVENT DATE: 201603
